FAERS Safety Report 7801018-9 (Version None)
Quarter: 2011Q4

REPORT INFORMATION
  Report Type: 
  Country: None (occurrence: None)
  Receive Date: 20111007
  Receipt Date: 20110930
  Transmission Date: 20120403
  Serious: Yes (Hospitalization)
  Sender: FDA-Public Use
  Company Number: US-BIOGENIDEC-2011BI037615

PATIENT
  Sex: Female

DRUGS (4)
  1. AVONEX [Suspect]
     Route: 030
     Dates: start: 20100624, end: 20100921
  2. AVONEX [Suspect]
     Route: 030
     Dates: start: 20060217
  3. AVONEX [Suspect]
     Indication: MULTIPLE SCLEROSIS
     Route: 030
     Dates: start: 20110227
  4. AVONEX [Suspect]
     Route: 030
     Dates: start: 20090515, end: 20091001

REACTIONS (2)
  - ADVERSE REACTION [None]
  - MULTIPLE SCLEROSIS RELAPSE [None]
